FAERS Safety Report 4980645-0 (Version None)
Quarter: 2006Q2

REPORT INFORMATION
  Report Type: 
  Country: None (occurrence: None)
  Receive Date: 20060424
  Receipt Date: 20050707
  Transmission Date: 20061013
  Serious: Yes (Hospitalization, Disabling)
  Sender: FDA-Public Use
  Company Number: US-MERCK-0507USA01282

PATIENT
  Age: 57 Year
  Sex: Male
  Weight: 91 kg

DRUGS (13)
  1. VIOXX [Suspect]
     Indication: OSTEOARTHRITIS
     Route: 048
     Dates: start: 20010409, end: 20040923
  2. LOTENSIN [Concomitant]
     Indication: HYPERTENSION
     Route: 065
     Dates: start: 19980311, end: 20030314
  3. HYDROCHLOROTHIAZIDE [Concomitant]
     Indication: HYPERTENSION
     Route: 065
     Dates: start: 20000201
  4. HYDROCHLOROTHIAZIDE [Concomitant]
     Indication: OEDEMA PERIPHERAL
     Route: 065
     Dates: start: 20000201
  5. LASIX [Concomitant]
     Indication: HYPERTENSION
     Route: 065
     Dates: start: 20010101, end: 20040101
  6. LASIX [Concomitant]
     Indication: OEDEMA PERIPHERAL
     Route: 065
     Dates: start: 20010101, end: 20040101
  7. CELEBREX [Concomitant]
     Indication: PAIN
     Route: 065
     Dates: start: 19990511, end: 20050126
  8. ACETAMINOPHEN AND CODEINE [Concomitant]
     Indication: PAIN
     Route: 065
     Dates: start: 19990213, end: 20040101
  9. KETOPROFEN [Concomitant]
     Indication: PAIN
     Route: 065
     Dates: start: 19970804, end: 20010326
  10. ADVIL [Concomitant]
     Indication: PAIN
     Route: 065
  11. MOTRIN [Concomitant]
     Indication: PAIN
     Route: 065
  12. IBUPROFEN [Concomitant]
     Indication: PAIN
     Route: 065
  13. TYLENOL (CAPLET) [Concomitant]
     Indication: PAIN
     Route: 065

REACTIONS (5)
  - ARTERIAL OCCLUSIVE DISEASE [None]
  - COUGH [None]
  - DYSPNOEA [None]
  - MUSCULOSKELETAL DISORDER [None]
  - MYOCARDIAL INFARCTION [None]
